FAERS Safety Report 7674925-8 (Version None)
Quarter: 2011Q3

REPORT INFORMATION
  Report Type: 
  Country: None (occurrence: None)
  Receive Date: 20110810
  Receipt Date: 20110727
  Transmission Date: 20111222
  Serious: Yes (Hospitalization, Other)
  Sender: FDA-Public Use
  Company Number: MX-ELI_LILLY_AND_COMPANY-MX201105008537

PATIENT
  Age: 38 Year
  Sex: Female
  Weight: 65 kg

DRUGS (14)
  1. ZYPREXA [Suspect]
     Dosage: 10 MG, EACH EVENING
     Dates: start: 20020101
  2. ZYPREXA [Suspect]
     Dosage: 5 MG, QD
     Dates: start: 20030101
  3. ZYPREXA [Suspect]
     Dosage: 10 MG, QD
     Dates: start: 20070101, end: 20100101
  4. EPIVAL                             /00228502/ [Concomitant]
     Dosage: 50 MG, EACH MORNING
     Route: 065
  5. CARBOLIT [Concomitant]
     Dosage: 300 MG, TID
     Route: 065
  6. CLONAZEPAM [Concomitant]
     Dosage: 2 MG, EACH EVENING
     Route: 065
  7. VALPROIC ACID [Concomitant]
     Dosage: 250 MG, UNKNOWN
     Route: 065
  8. VITAMIN E [Concomitant]
     Dosage: UNK, UNKNOWN
     Route: 065
  9. EPIVAL                             /00228502/ [Concomitant]
     Dosage: 50 MG, EACH EVENING
     Route: 065
  10. CENTRUM [Concomitant]
     Dosage: UNK, UNKNOWN
     Route: 065
  11. HOMEOPATHIC PREPARATION [Concomitant]
     Indication: LAXATIVE SUPPORTIVE CARE
     Dosage: UNK, UNKNOWN
     Route: 065
  12. ZYPREXA [Suspect]
     Indication: BIPOLAR I DISORDER
     Dosage: 20 MG, QD
     Route: 048
     Dates: start: 20100601
  13. ZYPREXA [Suspect]
     Dosage: 20 MG, QD
     Route: 048
  14. ZYPREXA [Suspect]
     Dosage: 10 MG, EACH MORNING
     Dates: start: 20020101

REACTIONS (11)
  - POLLAKIURIA [None]
  - PANIC DISORDER [None]
  - WEIGHT DECREASED [None]
  - DYSURIA [None]
  - DRUG DOSE OMISSION [None]
  - DEPRESSION [None]
  - WEIGHT INCREASED [None]
  - OEDEMA [None]
  - JEALOUS DELUSION [None]
  - SOMNOLENCE [None]
  - ANXIETY [None]
